FAERS Safety Report 9091671 (Version 1)
Quarter: 2013Q1

REPORT INFORMATION
  Report Type: Report from Study
  Country: US (occurrence: US)
  Receive Date: 20130131
  Receipt Date: 20130131
  Transmission Date: 20140127
  Serious: No
  Sender: FDA-Public Use
  Company Number: US-ABBOTT-12P-163-1004757-00

PATIENT
  Age: 36 Year
  Sex: Female

DRUGS (4)
  1. HUMIRA [Suspect]
     Dosage: 160MG ON 02 NOV 2012
     Route: 058
     Dates: start: 20121102, end: 20121102
  2. HUMIRA [Suspect]
     Route: 058
  3. TRAZODONE [Concomitant]
     Indication: INSOMNIA
  4. ALLEGRA-D [Concomitant]
     Indication: HYPERSENSITIVITY

REACTIONS (2)
  - Diarrhoea [Not Recovered/Not Resolved]
  - Abdominal pain [Not Recovered/Not Resolved]
